FAERS Safety Report 6572410-8 (Version None)
Quarter: 2010Q1

REPORT INFORMATION
  Report Type: 
  Country: None (occurrence: None)
  Receive Date: 20100205
  Receipt Date: 20100127
  Transmission Date: 20100710
  Serious: Yes (Hospitalization)
  Sender: FDA-Public Use
  Company Number: NL-BAYER-201014250GPV

PATIENT
  Age: 23 Year
  Sex: Female

DRUGS (1)
  1. CLOTRIMAZOLE [Suspect]
     Indication: VULVOVAGINAL CANDIDIASIS
     Dosage: 10 MG/G
     Route: 067
     Dates: start: 20100118, end: 20100118

REACTIONS (1)
  - HYPERSENSITIVITY [None]
